FAERS Safety Report 9420376 (Version 1)
Quarter: 2013Q3

REPORT INFORMATION
  Report Type: Report from Study
  Country: GB (occurrence: GB)
  Receive Date: 20130725
  Receipt Date: 20130725
  Transmission Date: 20140515
  Serious: Yes (Other)
  Sender: FDA-Public Use
  Company Number: GB-AMGEN-GBRCT2013051780

PATIENT
  Age: 63 Year
  Sex: Male
  Weight: 83 kg

DRUGS (8)
  1. ETANERCEPT [Suspect]
     Indication: PRODUCT USED FOR UNKNOWN INDICATION
     Dosage: 50 MG, WEEKLY
     Route: 065
     Dates: start: 20110517, end: 20121115
  2. ETANERCEPT [Suspect]
     Dosage: 50 MG, WEEKLY
     Route: 065
     Dates: start: 20130120
  3. SIMVASTATIN [Concomitant]
     Dosage: UNK
     Dates: start: 20060615
  4. LISINOPRIL [Concomitant]
     Dosage: UNK
     Dates: start: 20060615
  5. THYROXINE [Concomitant]
     Dosage: UNK
     Dates: start: 19930615
  6. NAPROXEN [Concomitant]
     Dosage: UNK
     Dates: start: 20120615
  7. OMEPRAZOLE [Concomitant]
     Dosage: UNK
     Dates: start: 20120615
  8. TAMSULOSIN HYDROCHLORIDE [Concomitant]
     Dosage: UNK
     Dates: start: 20130115

REACTIONS (1)
  - Skin lesion [Not Recovered/Not Resolved]
